FAERS Safety Report 9747943 (Version 2)
Quarter: 2014Q2

REPORT INFORMATION
  Report Type: Spontaneous
  Country: FR (occurrence: None)
  Receive Date: 20131206
  Receipt Date: 20140519
  Transmission Date: 20141212
  Serious: Yes (Hospitalization)
  Sender: FDA-Public Use
  Company Number: 224746

PATIENT
  Age: 45 Year
  Sex: Male

DRUGS (2)
  1. DAIVOBET [Suspect]
     Indication: PSORIATIC ARTHROPATHY
     Route: 061
  2. STERLARA (USTEKINUMAS) [Concomitant]

REACTIONS (4)
  - Off label use [None]
  - Incorrect route of drug administration [None]
  - Type 2 diabetes mellitus [None]
  - General physical health deterioration [None]
